FAERS Safety Report 7544146-8 (Version None)
Quarter: 2011Q2

REPORT INFORMATION
  Report Type: 
  Country: None (occurrence: None)
  Receive Date: 20110613
  Receipt Date: 20060619
  Transmission Date: 20111010
  Serious: Yes (Hospitalization)
  Sender: FDA-Public Use
  Company Number: PHHO2006CL10049

PATIENT
  Age: 70 Year
  Sex: Female

DRUGS (6)
  1. RAVOTRIL [Concomitant]
     Dosage: 50 MG, TID
  2. TENSODOX [Concomitant]
     Dosage: 10 MG, QD
     Route: 048
  3. VALSARTAN [Suspect]
     Dosage: 172.5 MG, QD
     Route: 048
     Dates: start: 20051001
  4. KETOPROFEN [Concomitant]
     Dosage: 200 MG, QD
  5. TICE BCG [Concomitant]
  6. LIPITOR [Concomitant]

REACTIONS (1)
  - ANGINA UNSTABLE [None]
